FAERS Safety Report 21093194 (Version 1)
Quarter: 2022Q3

REPORT INFORMATION
  Report Type: Spontaneous
  Country: US (occurrence: US)
  Receive Date: 20220718
  Receipt Date: 20220718
  Transmission Date: 20221027
  Serious: No
  Sender: FDA-Public Use
  Company Number: US-TAKEDA-2022TUS047803

PATIENT

DRUGS (1)
  1. GAMMAGARD LIQUID [Suspect]
     Active Substance: HUMAN IMMUNOGLOBULIN G
     Indication: Myelin oligodendrocyte glycoprotein antibody-associated disease
     Route: 065

REACTIONS (2)
  - Product use in unapproved indication [Unknown]
  - No adverse event [Unknown]
